FAERS Safety Report 6544321-5 (Version None)
Quarter: 2010Q1

REPORT INFORMATION
  Report Type: 
  Country: None (occurrence: None)
  Receive Date: 20100120
  Receipt Date: 20100120
  Transmission Date: 20100710
  Serious: Yes (Death)
  Sender: FDA-Public Use
  Company Number: None

PATIENT
  Age: 50 Year
  Sex: Male
  Weight: 72.5755 kg

DRUGS (1)
  1. OPANA ER [Suspect]

REACTIONS (6)
  - ADRENAL DISORDER [None]
  - DRUG PRESCRIBING ERROR [None]
  - FEELING COLD [None]
  - HEPATIC FAILURE [None]
  - RENAL FAILURE [None]
  - UNRESPONSIVE TO STIMULI [None]
